FAERS Safety Report 12520030 (Version 2)
Quarter: 2016Q3

REPORT INFORMATION
  Report Type: Spontaneous
  Country: FR (occurrence: FR)
  Receive Date: 20160701
  Receipt Date: 20160802
  Transmission Date: 20161109
  Serious: Yes (Hospitalization)
  Sender: FDA-Public Use
  Company Number: FR-ROCHE-1785878

PATIENT
  Age: 77 Year
  Sex: Male

DRUGS (11)
  1. ZYDELIG [Suspect]
     Active Substance: IDELALISIB
     Indication: LYMPHOMA
     Route: 048
     Dates: start: 20160104, end: 20160525
  2. FLECAINE [Suspect]
     Active Substance: FLECAINIDE
     Indication: TRANSIENT ISCHAEMIC ATTACK
     Route: 048
     Dates: start: 20160104
  3. ATORVASTATINE [Concomitant]
     Active Substance: ATORVASTATIN
     Route: 065
     Dates: end: 20160607
  4. MABTHERA [Suspect]
     Active Substance: RITUXIMAB
     Indication: LYMPHOMA
     Dosage: 375 MG/M2 THEN 500 MG/M2 IN 1 INJECTION PER MONTH
     Route: 042
     Dates: start: 20160104, end: 20160525
  5. ZELITREX [Suspect]
     Active Substance: VALACYCLOVIR HYDROCHLORIDE
     Indication: PROPHYLAXIS
     Route: 048
     Dates: start: 201601, end: 20160525
  6. PRIMPERAN [Suspect]
     Active Substance: METOCLOPRAMIDE HYDROCHLORIDE
     Indication: NAUSEA
     Dosage: AS REQUIRED.
     Route: 048
     Dates: start: 201601, end: 20160525
  7. XARELTO [Suspect]
     Active Substance: RIVAROXABAN
     Indication: TRANSIENT ISCHAEMIC ATTACK
     Route: 048
     Dates: start: 20160104
  8. DERMOVAL (FRANCE) [Concomitant]
     Dosage: 3 TUBE A DAY FOR SYMPTOMATIC TREATMENT
     Route: 065
  9. BISOPROLOL [Concomitant]
     Active Substance: BISOPROLOL
  10. LERCANIDIPINE [Concomitant]
     Active Substance: LERCANIDIPINE
  11. ALLOPURINOL. [Suspect]
     Active Substance: ALLOPURINOL
     Indication: LYMPHOMA
     Route: 048
     Dates: start: 201601, end: 20160525

REACTIONS (1)
  - Dermatitis exfoliative [Recovering/Resolving]

NARRATIVE: CASE EVENT DATE: 20160525
